FAERS Safety Report 5806187-8 (Version None)
Quarter: 2008Q3

REPORT INFORMATION
  Report Type: 
  Country: None (occurrence: None)
  Receive Date: 20080710
  Receipt Date: 20080703
  Transmission Date: 20090109
  Serious: Yes (Life-Threatening, Hospitalization, Other)
  Sender: FDA-Public Use
  Company Number: IE-AVENTIS-200816114GDDC

PATIENT
  Age: 18 Year
  Sex: Male

DRUGS (3)
  1. LEVEMIR [Suspect]
     Route: 058
     Dates: start: 20080611
  2. RAPID ACTING INSULIN [Suspect]
  3. UNKNOWN DRUG [Concomitant]

REACTIONS (3)
  - HYPERGLYCAEMIA [None]
  - KETOACIDOSIS [None]
  - PHARMACEUTICAL PRODUCT COMPLAINT [None]
